FAERS Safety Report 14559260 (Version 4)
Quarter: 2018Q2

REPORT INFORMATION
  Report Type: Report from Study
  Country: JP (occurrence: JP)
  Receive Date: 20180221
  Receipt Date: 20180405
  Transmission Date: 20180711
  Serious: Yes (Hospitalization, Other)
  Sender: FDA-Public Use
  Company Number: JP-EISAI MEDICAL RESEARCH-EC-2018-036384

PATIENT
  Age: 68 Year
  Sex: Female

DRUGS (1)
  1. LENVIMA [Suspect]
     Active Substance: LENVATINIB
     Indication: THYROID CANCER
     Route: 048
     Dates: start: 20170713, end: 20180212

REACTIONS (2)
  - Gastrointestinal perforation [Recovered/Resolved]
  - Upper airway obstruction [Recovered/Resolved]

NARRATIVE: CASE EVENT DATE: 20180212
